FAERS Safety Report 11199700 (Version 1)
Quarter: 2015Q2

REPORT INFORMATION
  Report Type: Spontaneous
  Country: US (occurrence: None)
  Receive Date: 20150616
  Receipt Date: 20150616
  Transmission Date: 20150821
  Serious: Yes (Disabling)
  Sender: FDA-Public Use
  Company Number: None

PATIENT
  Age: 72 Year
  Sex: Female
  Weight: 112.04 kg

DRUGS (9)
  1. ONE-A DAY VIT. [Concomitant]
  2. MAGNIESUM [Concomitant]
  3. GLUCOSAMIN CHONDROTIN [Concomitant]
  4. ALEVE [Concomitant]
     Active Substance: NAPROXEN SODIUM
  5. ATORVASTATIN [Concomitant]
     Active Substance: ATORVASTATIN
  6. FISH OIL [Concomitant]
     Active Substance: FISH OIL
  7. LEVOTHYROXIN [Concomitant]
     Active Substance: LEVOTHYROXINE
  8. LEVOFLOXACIN. [Suspect]
     Active Substance: LEVOFLOXACIN
     Indication: SINUSITIS
     Dosage: 1 PILL 1 A DAY X7 BY MOUTH
     Route: 048
     Dates: start: 20150306, end: 20150313
  9. GABAPENTIN. [Concomitant]
     Active Substance: GABAPENTIN

REACTIONS (5)
  - Arthralgia [None]
  - Gait disturbance [None]
  - Muscular weakness [None]
  - Myalgia [None]
  - Tendonitis [None]

NARRATIVE: CASE EVENT DATE: 20150306
